FAERS Safety Report 9645665 (Version 2)
Quarter: 2013Q4

REPORT INFORMATION
  Report Type: Spontaneous
  Country: GB (occurrence: GB)
  Receive Date: 20131025
  Receipt Date: 20131025
  Transmission Date: 20140711
  Serious: Yes (Death, Hospitalization, Other)
  Sender: FDA-Public Use
  Company Number: PHHY2013GB043440

PATIENT
  Age: 80 Year
  Sex: Male
  Weight: 60 kg

DRUGS (10)
  1. STALEVO [Suspect]
     Indication: PARKINSON^S DISEASE
     Dosage: UNK UKN, UNK
     Dates: start: 2012
  2. STALEVO [Suspect]
     Dosage: 4 DF, QD
     Route: 048
     Dates: start: 20130309, end: 20130314
  3. CALCICHEW D3 [Concomitant]
     Dosage: 3 DF, BID
     Route: 048
  4. FERROUS FUMARATE [Concomitant]
     Dosage: 210 MG, QD
     Route: 048
  5. FOLIC ACID [Concomitant]
     Dosage: 5 MG, QD
     Route: 048
  6. HYPROMELLOSE [Concomitant]
  7. MOXONIDINE [Concomitant]
     Dosage: 200 UG, UNK
     Route: 048
  8. PARACETAMOL [Concomitant]
     Dosage: UNK UKN, UNK
  9. SINEMET-CR [Concomitant]
     Dosage: 125 MG, UNK
     Route: 048
  10. WARFARIN [Concomitant]
     Dosage: UNK UKN, UNK

REACTIONS (7)
  - Parkinson^s disease [Fatal]
  - Dehydration [Not Recovered/Not Resolved]
  - Liver function test abnormal [Not Recovered/Not Resolved]
  - Hallucination [Not Recovered/Not Resolved]
  - Urinary retention [Not Recovered/Not Resolved]
  - Somnolence [Not Recovered/Not Resolved]
  - Diarrhoea [Not Recovered/Not Resolved]
